FAERS Safety Report 8917502 (Version 1)
Quarter: 2012Q4

REPORT INFORMATION
  Report Type: 
  Country: MX (occurrence: MX)
  Receive Date: 20121120
  Receipt Date: 20121120
  Transmission Date: 20130627
  Serious: Yes (Hospitalization, Other)
  Sender: FDA-Public Use
  Company Number: MX-BRISTOL-MYERS SQUIBB COMPANY-17120403

PATIENT
  Age: 74 Year
  Sex: Male
  Weight: 68 kg

DRUGS (3)
  1. COAPROVEL TABS [Suspect]
     Indication: HYPERTENSION
     Dosage: unk-sep12-300mg+12.5mg
sep12-ong-150mg+12.5mg
     Route: 048
  2. OSCAL D [Concomitant]
     Indication: BONE DISORDER
     Dosage: 1df= 500mg+200IU tab
     Route: 048
     Dates: start: 201210
  3. FOSAMAX [Concomitant]
     Indication: BONE DISORDER
     Route: 048
     Dates: start: 201210

REACTIONS (3)
  - Renal cancer [Recovered/Resolved]
  - Prostate cancer [Recovered/Resolved]
  - Hypotension [Recovered/Resolved]
